FAERS Safety Report 6018938-0 (Version None)
Quarter: 2008Q4

REPORT INFORMATION
  Report Type: 
  Country: None (occurrence: None)
  Receive Date: 20081224
  Receipt Date: 20081215
  Transmission Date: 20090506
  Serious: Yes (Death)
  Sender: FDA-Public Use
  Company Number: US-PFIZER INC-2008153670

PATIENT
  Age: 57 Year
  Sex: Male

DRUGS (8)
  1. VERAPAMIL HCL [Suspect]
     Route: 048
  2. GLIPIZIDE [Suspect]
     Route: 048
  3. PROPRANOLOL [Suspect]
     Route: 048
  4. LITHIUM [Suspect]
     Route: 048
  5. QUETIAPINE [Suspect]
     Route: 048
  6. CLONIDINE [Suspect]
     Route: 048
  7. MODAFINIL [Suspect]
     Route: 048
  8. PAROXETINE [Suspect]
     Route: 048

REACTIONS (1)
  - DEATH [None]
